FAERS Safety Report 7144954-1 (Version None)
Quarter: 2010Q4

REPORT INFORMATION
  Report Type: 
  Country: None (occurrence: None)
  Receive Date: 20101123
  Receipt Date: 20101020
  Transmission Date: 20110411
  Serious: No
  Sender: FDA-Public Use
  Company Number: 020703

PATIENT
  Sex: Female
  Weight: 90.7 kg

DRUGS (4)
  1. CIMZIA [Suspect]
     Indication: RHEUMATOID ARTHRITIS
     Dosage: 400MG/ML SUBCUTANEOUS
     Route: 058
     Dates: start: 20100301, end: 20100401
  2. HUMIRA [Concomitant]
  3. METHOTREXATE [Concomitant]
  4. ENALAPRIL MALEATE [Concomitant]

REACTIONS (3)
  - BONE GRAFT [None]
  - DRUG INEFFECTIVE [None]
  - PAIN [None]
